FAERS Safety Report 10988368 (Version 3)
Quarter: 2016Q2

REPORT INFORMATION
  Report Type: Spontaneous
  Country: US (occurrence: US)
  Receive Date: 20150404
  Receipt Date: 20160620
  Transmission Date: 20160815
  Serious: Yes (Other)
  Sender: FDA-Public Use
  Company Number: US-JNJFOC-20111202034

PATIENT
  Age: 21 Year
  Sex: Male
  Weight: 115 kg

DRUGS (6)
  1. REMICADE [Suspect]
     Active Substance: INFLIXIMAB
     Indication: COLITIS ULCERATIVE
     Dosage: INDUCTION WEEK 0,2, 6 THEN ONCE IN 8 WEEKS
     Route: 042
     Dates: start: 20111111
  2. OMEPRAZOLE. [Concomitant]
     Active Substance: OMEPRAZOLE
     Dosage: 30 MINUTES BEFORE THE FIRST MEAL
     Route: 048
  3. AZACITIDINE. [Concomitant]
     Active Substance: AZACITIDINE
     Route: 065
     Dates: start: 201110
  4. COLAZAL [Concomitant]
     Active Substance: BALSALAZIDE DISODIUM
     Route: 048
  5. PREDNISONE. [Concomitant]
     Active Substance: PREDNISONE
     Route: 065
  6. TYLENOL [Concomitant]
     Active Substance: ACETAMINOPHEN
     Indication: PREMEDICATION
     Route: 048

REACTIONS (3)
  - Pyrexia [Recovering/Resolving]
  - Gastrointestinal disorder [Recovering/Resolving]
  - Clostridium difficile infection [Unknown]

NARRATIVE: CASE EVENT DATE: 201111
